FAERS Safety Report 5106380-6 (Version None)
Quarter: 2006Q3

REPORT INFORMATION
  Report Type: 
  Country: None (occurrence: None)
  Receive Date: 20060918
  Receipt Date: 20060427
  Transmission Date: 20061208
  Serious: Yes (Other)
  Sender: FDA-Public Use
  Company Number: PHEH2006US05543

PATIENT
  Sex: Female

DRUGS (2)
  1. HORMONES [Concomitant]
  2. AREDIA [Suspect]
     Indication: METASTASES TO BONE
     Dosage: 90 MG, QMO
     Dates: start: 20031106, end: 20060116

REACTIONS (12)
  - BONE DISORDER [None]
  - ERYTHEMA [None]
  - GINGIVAL PAIN [None]
  - IRON DEFICIENCY ANAEMIA [None]
  - ORAL INTAKE REDUCED [None]
  - ORAL SOFT TISSUE DISORDER [None]
  - OSTEONECROSIS [None]
  - RENAL FAILURE [None]
  - SEQUESTRECTOMY [None]
  - SWELLING [None]
  - TOOTH EXTRACTION [None]
  - WOUND DEBRIDEMENT [None]
